FAERS Safety Report 19024562 (Version 2)
Quarter: 2021Q2

REPORT INFORMATION
  Report Type: Report from Study
  Country: CO (occurrence: CO)
  Receive Date: 20210318
  Receipt Date: 20210424
  Transmission Date: 20210717
  Serious: Yes (Death, Hospitalization)
  Sender: FDA-Public Use
  Company Number: NVSC2021CO062256

PATIENT
  Age: 60 Year
  Sex: Female

DRUGS (3)
  1. KISQALI [Suspect]
     Active Substance: RIBOCICLIB
     Indication: MENOPAUSAL SYMPTOMS
  2. FEMARA [Suspect]
     Active Substance: LETROZOLE
     Indication: BREAST CANCER
     Dosage: UNK, QD
     Route: 048
     Dates: start: 202008
  3. KISQALI [Suspect]
     Active Substance: RIBOCICLIB
     Indication: BREAST CANCER METASTATIC
     Dosage: UNK, QD
     Route: 048
     Dates: start: 202008

REACTIONS (4)
  - Choking [Unknown]
  - Breast cancer metastatic [Fatal]
  - Malignant neoplasm progression [Fatal]
  - Metastases to lung [Fatal]

NARRATIVE: CASE EVENT DATE: 20210210
